FAERS Safety Report 15314402 (Version 2)
Quarter: 2019Q2

REPORT INFORMATION
  Report Type: Spontaneous
  Country: US (occurrence: US)
  Receive Date: 20180824
  Receipt Date: 20190507
  Transmission Date: 20190711
  Serious: Yes (Hospitalization)
  Sender: FDA-Public Use
  Company Number: US-B.I. PHARMACEUTICALS,INC./RIDGEFIELD-2018-BI-042681

PATIENT
  Age: 74 Year
  Sex: Male

DRUGS (17)
  1. MAGNESIUM OXIDE. [Concomitant]
     Active Substance: MAGNESIUM OXIDE
     Indication: PRODUCT USED FOR UNKNOWN INDICATION
     Dosage: TAKE 1 TABLET BY MOUTH EVERYDAY
     Route: 048
  2. CHLORHEXIDINE [Concomitant]
     Active Substance: CHLORHEXIDINE
     Indication: PRODUCT USED FOR UNKNOWN INDICATION
     Dosage: 0.12 PERCENT SOLN; RINSE WITH 3 TEASPOONS TWICE A DAY AFTER FLOSSING AND BRUSHING/AS DIRECTED
     Route: 065
  3. I-VITE [Concomitant]
     Indication: PRODUCT USED FOR UNKNOWN INDICATION
     Dosage: TAKE 1 TABLET BY MOUTH EVERY DAY
     Route: 048
  4. DOCUSATE SODIUM. [Concomitant]
     Active Substance: DOCUSATE SODIUM
     Indication: PRODUCT USED FOR UNKNOWN INDICATION
     Dosage: TAKE 1 CAPSULE BY MOUTH TWICE A DAY
     Route: 048
  5. FUROSEMIDE. [Concomitant]
     Active Substance: FUROSEMIDE
     Indication: PRODUCT USED FOR UNKNOWN INDICATION
     Dosage: TAKE 1 TABLET BY MOUTH EVERY DAY
     Route: 048
  6. TELMISARTAN. [Concomitant]
     Active Substance: TELMISARTAN
     Indication: PRODUCT USED FOR UNKNOWN INDICATION
     Dosage: TAKE 1 TABLET BY MOUTH EVERYDAY
     Route: 048
  7. CYANOCOBALAMIN. [Concomitant]
     Active Substance: CYANOCOBALAMIN
     Indication: PRODUCT USED FOR UNKNOWN INDICATION
     Dosage: TAKE 1 TABLET BY MOUTH EVERY DAY
     Route: 048
  8. OXCARBAZEPINE. [Concomitant]
     Active Substance: OXCARBAZEPINE
     Indication: PRODUCT USED FOR UNKNOWN INDICATION
     Dosage: TAKE 1 TABLET BY MOUTH 2 TIMES A DAY
     Route: 048
  9. TIOTROPIUM [Concomitant]
     Active Substance: TIOTROPIUM
     Indication: PRODUCT USED FOR UNKNOWN INDICATION
     Dosage: PLACE 1 CAPSULE INTO INHALER AND INHALE EVER
     Route: 055
  10. ALBUTEROL. [Concomitant]
     Active Substance: ALBUTEROL
     Dosage: PO 2.5 /3ML NEBU; USE 3ML (2.5MG TOTAL) BY NEBULIZATION EVERY SIX HOURS AS NEEDED
     Route: 048
  11. FLUTICASONE W/SALMETEROL [Concomitant]
     Active Substance: FLUTICASONE PROPIONATE\SALMETEROL XINAFOATE
     Indication: PRODUCT USED FOR UNKNOWN INDICATION
     Dosage: FORM STRENGTH: 250/50MCG; INHALE 1 PUFF INTO THE LUNG 2 TIMES  A DAY
     Route: 055
  12. PRAVASTATIN. [Concomitant]
     Active Substance: PRAVASTATIN
     Indication: PRODUCT USED FOR UNKNOWN INDICATION
     Dosage: TAKE 1 TABLET BY MOUTH EVERY DAY
     Route: 048
  13. PRADAXA [Suspect]
     Active Substance: DABIGATRAN ETEXILATE MESYLATE
     Indication: ATRIAL FIBRILLATION
     Route: 048
     Dates: start: 20120918
  14. ALBUTEROL. [Concomitant]
     Active Substance: ALBUTEROL
     Indication: WHEEZING
     Dosage: FORM STRENGTH: 90MCG/PUFF MDI; INHALE TWO PUFFS INTO LUNGS EVERY 6 HOURS AS NEEDED
     Route: 055
  15. METFORMIN [Concomitant]
     Active Substance: METFORMIN HYDROCHLORIDE
     Indication: PRODUCT USED FOR UNKNOWN INDICATION
     Dosage: TAKE 1 TABLET BY MOUTH 2 TIMES A DAY WITH MEALS
     Route: 048
  16. CARBOXYMETHYLCELLULOSE [Concomitant]
     Active Substance: CARBOXYMETHYLCELLULOSE
     Indication: PRODUCT USED FOR UNKNOWN INDICATION
     Dosage: FORM STRENGTH: OPT:- 0.5 PERCENT SOLUTION
     Route: 065
  17. SILDENAFIL. [Concomitant]
     Active Substance: SILDENAFIL
     Indication: PRODUCT USED FOR UNKNOWN INDICATION
     Dosage: TAKE 1 TABLET BY MOUTH 1 TO 2 HOURS BEFORE DESIRED EFFECT
     Route: 048

REACTIONS (2)
  - Gastrointestinal haemorrhage [Unknown]
  - Gastrointestinal haemorrhage [Unknown]

NARRATIVE: CASE EVENT DATE: 20160825
